FAERS Safety Report 9832833 (Version 4)
Quarter: 2014Q1

REPORT INFORMATION
  Report Type: Spontaneous
  Country: US (occurrence: US)
  Receive Date: 20140121
  Receipt Date: 20140327
  Transmission Date: 20141002
  Serious: Yes (Hospitalization)
  Sender: FDA-Public Use
  Company Number: US-B.I. PHARMACEUTICALS,INC./RIDGEFIELD-2013-BI-23014BP

PATIENT
  Sex: Female
  Weight: 100.7 kg

DRUGS (7)
  1. PRADAXA [Suspect]
     Indication: ATRIAL FIBRILLATION
     Route: 065
     Dates: start: 20111106, end: 20121224
  2. KLOR-CON [Concomitant]
     Route: 065
     Dates: start: 2003
  3. SILDENAFIL [Concomitant]
     Route: 065
     Dates: start: 2010, end: 2013
  4. GABAPENTIN [Concomitant]
     Route: 065
     Dates: start: 2011
  5. LISINOPRIL [Concomitant]
     Route: 065
     Dates: start: 2003, end: 2013
  6. FUROSEMIDE [Concomitant]
     Route: 065
  7. ASPIRIN [Concomitant]
     Indication: ATRIAL FIBRILLATION
     Route: 065
     Dates: end: 20121224

REACTIONS (4)
  - Gastrointestinal haemorrhage [Unknown]
  - Haemorrhagic anaemia [Unknown]
  - Coagulopathy [Unknown]
  - Renal failure acute [Unknown]
